FAERS Safety Report 4762109-2 (Version None)
Quarter: 2005Q3

REPORT INFORMATION
  Report Type: 
  Country: None (occurrence: None)
  Receive Date: 20050901
  Receipt Date: 20050504
  Transmission Date: 20060218
  Serious: No
  Sender: FDA-Public Use
  Company Number: 200510891BWH

PATIENT
  Age: 74 Year
  Sex: Male

DRUGS (2)
  1. LEVITRA [Suspect]
     Indication: ERECTILE DYSFUNCTION
     Dosage: 10 MG, PRN, ORAL
     Route: 048
     Dates: start: 20050428, end: 20050502
  2. MEDICATION FOR GOUT [Concomitant]

REACTIONS (1)
  - DRUG INEFFECTIVE [None]
